FAERS Safety Report 5850709-8 (Version None)
Quarter: 2008Q3

REPORT INFORMATION
  Report Type: 
  Country: None (occurrence: None)
  Receive Date: 20080820
  Receipt Date: 20080819
  Transmission Date: 20090109
  Serious: Yes (Other)
  Sender: FDA-Public Use
  Company Number: US-BRISTOL-MYERS SQUIBB COMPANY-14304588

PATIENT
  Age: 31 Year
  Sex: Female

DRUGS (3)
  1. REYATAZ [Suspect]
     Indication: ANTIRETROVIRAL THERAPY
     Dosage: 300 MG, DAILY, TAKEN FROM 13-NOV-2007 AND ONGOING.
     Route: 048
     Dates: start: 20060630
  2. NORVIR [Suspect]
     Indication: ANTIRETROVIRAL THERAPY
     Route: 048
     Dates: start: 20071113
  3. TRUVADA [Suspect]
     Indication: ANTIRETROVIRAL THERAPY
     Dosage: 1 DOSAGE FORM = 1 TABLET.
     Route: 048
     Dates: start: 20060630

REACTIONS (2)
  - ABORTION SPONTANEOUS [None]
  - PREGNANCY [None]
